FAERS Safety Report 25056402 (Version 1)
Quarter: 2025Q1

REPORT INFORMATION
  Report Type: Spontaneous
  Country: JP (occurrence: JP)
  Receive Date: 20250310
  Receipt Date: 20250310
  Transmission Date: 20250409
  Serious: Yes (Other)
  Sender: ASTELLAS
  Company Number: JP-ASTELLAS-2025-AER-011443

PATIENT
  Age: 13 Year
  Sex: Male

DRUGS (2)
  1. PROGRAF [Suspect]
     Active Substance: TACROLIMUS
     Indication: Colitis ulcerative
     Route: 048
     Dates: start: 202502
  2. HEPARIN [Concomitant]
     Active Substance: HEPARIN SODIUM
     Indication: Product used for unknown indication
     Route: 065

REACTIONS (6)
  - Colitis ulcerative [Unknown]
  - Thrombosis [Unknown]
  - Immunosuppressant drug level increased [Unknown]
  - Diarrhoea [Unknown]
  - Drug level changed [Unknown]
  - Off label use [Unknown]

NARRATIVE: CASE EVENT DATE: 20250201
